FAERS Safety Report 13980463 (Version 1)
Quarter: 2017Q3

REPORT INFORMATION
  Report Type: Report from Study
  Country: DE (occurrence: DE)
  Receive Date: 20170918
  Receipt Date: 20170918
  Transmission Date: 20171128
  Serious: Yes (Death, Life-Threatening, Hospitalization)
  Sender: FDA-Public Use
  Company Number: DE-ROCHE-1920339

PATIENT
  Age: 66 Year
  Sex: Female
  Weight: 65 kg

DRUGS (14)
  1. PERTUZUMAB. [Suspect]
     Active Substance: PERTUZUMAB
     Indication: HER-2 POSITIVE BREAST CANCER
     Dosage: LAST DOSE PRIOR TO SAE: 11/JAN/2017
     Route: 042
     Dates: start: 20170111, end: 20170706
  2. L-THYROXIN [Concomitant]
     Active Substance: LEVOTHYROXINE SODIUM
     Indication: HYPERTHYROIDISM
     Route: 048
     Dates: start: 20170131
  3. OXYCODON [Concomitant]
     Active Substance: OXYCODONE
     Indication: SCIATICA
     Route: 048
     Dates: start: 20161208
  4. METAMIZOL [Concomitant]
     Active Substance: METAMIZOLE SODIUM
     Indication: SCIATICA
     Route: 048
  5. PANTOPRAZOL [Concomitant]
     Active Substance: PANTOPRAZOLE SODIUM
     Dosage: PROTECTION OF GASTRIC MUCOSA
     Route: 048
     Dates: start: 20170131
  6. CLEMASTIN [Concomitant]
     Active Substance: CLEMASTINE
  7. SODIUM CHLORIDE. [Concomitant]
     Active Substance: SODIUM CHLORIDE
  8. PACLITAXEL. [Suspect]
     Active Substance: PACLITAXEL
     Indication: HER-2 POSITIVE BREAST CANCER
     Dosage: LAST DOSE PRIOR TO SAE: 25/JAN/2017
     Route: 042
     Dates: start: 20170111, end: 20170706
  9. ZOMETA [Suspect]
     Active Substance: ZOLEDRONIC ACID
     Indication: METASTASES TO BONE
     Route: 042
     Dates: start: 20170405
  10. NOVALGIN [Concomitant]
     Active Substance: METAMIZOLE SODIUM
     Indication: SCIATICA
     Route: 048
     Dates: start: 20161114
  11. TRASTUZUMAB. [Suspect]
     Active Substance: TRASTUZUMAB
     Indication: HER-2 POSITIVE BREAST CANCER
     Dosage: LAST DOSE PRIOR TO SAE: 11/JAN/2017
     Route: 042
     Dates: start: 20170111, end: 20170706
  12. CLEXANE [Concomitant]
     Active Substance: ENOXAPARIN SODIUM
     Indication: THROMBOSIS PROPHYLAXIS
     Route: 058
     Dates: start: 20170131
  13. CELEBREX [Concomitant]
     Active Substance: CELECOXIB
     Indication: SCIATICA
     Route: 048
     Dates: start: 20170131
  14. RANITIDIN [Concomitant]
     Active Substance: RANITIDINE HYDROCHLORIDE

REACTIONS (7)
  - Pneumonia [Fatal]
  - Back pain [Recovered/Resolved]
  - Anaphylactic reaction [Recovered/Resolved]
  - Sepsis [Fatal]
  - Anaphylactic reaction [Not Recovered/Not Resolved]
  - Fall [Unknown]
  - Upper limb fracture [Recovered/Resolved]

NARRATIVE: CASE EVENT DATE: 20170126
